FAERS Safety Report 6518841-3 (Version None)
Quarter: 2009Q4

REPORT INFORMATION
  Report Type: 
  Country: None (occurrence: None)
  Receive Date: 20091218
  Receipt Date: 20091203
  Transmission Date: 20100525
  Serious: Yes (Hospitalization)
  Sender: FDA-Public Use
  Company Number: WAES 0412CHN00021

PATIENT
  Age: 74 Year
  Sex: Male

DRUGS (10)
  1. COZAAR [Suspect]
     Indication: MYOCARDIAL ISCHAEMIA
     Dosage: 150 MG/DAILY PO
     Route: 048
     Dates: start: 20030403, end: 20030505
  2. COZAAR [Suspect]
     Indication: MYOCARDIAL ISCHAEMIA
     Dosage: 150 MG/DAILY PO
     Route: 048
     Dates: start: 20030506, end: 20041116
  3. COZAAR [Suspect]
     Indication: MYOCARDIAL ISCHAEMIA
     Dosage: 150 MG/DAILY PO
     Route: 048
     Dates: start: 20041119, end: 20041201
  4. ALLOPURINOL [Concomitant]
  5. ASPIRIN [Concomitant]
  6. BUMETANIDE [Concomitant]
  7. FUROSEMIDE [Concomitant]
  8. ISOSORBIDE DINITRATE [Concomitant]
  9. METOPROLOL [Concomitant]
  10. PIPERAZINE [Concomitant]

REACTIONS (4)
  - DERMATITIS EXFOLIATIVE [None]
  - HYPOTENSION [None]
  - LUNG INFECTION [None]
  - PYREXIA [None]
